FAERS Safety Report 9333859 (Version 1)
Quarter: 2013Q2

REPORT INFORMATION
  Report Type: Spontaneous
  Country: GB (occurrence: None)
  Receive Date: 20130604
  Receipt Date: 20130604
  Transmission Date: 20140414
  Serious: Yes (Other)
  Sender: FDA-Public Use
  Company Number: KAD201305-000677

PATIENT
  Sex: Male

DRUGS (3)
  1. RIBAVIRIN (RIBAVIRIN) [Suspect]
     Indication: HEPATITIS C
     Dosage: STOPPED?
  2. INCIVO [Suspect]
     Indication: HEPATITIS C
     Dosage: STOPPED
     Route: 048
  3. PEGYLATED INTERFERON NOS [Suspect]
     Indication: HEPATITIS C

REACTIONS (2)
  - Rash [None]
  - Skin necrosis [None]
